FAERS Safety Report 17960661 (Version 2)
Quarter: 2020Q3

REPORT INFORMATION
  Report Type: Spontaneous
  Country: NL (occurrence: NL)
  Receive Date: 20200630
  Receipt Date: 20200707
  Transmission Date: 20201103
  Serious: Yes (Life-Threatening, Other)
  Sender: FDA-Public Use
  Company Number: NL-AUROBINDO-AUR-APL-2020-031820

PATIENT
  Sex: Female
  Weight: 60 kg

DRUGS (2)
  1. LINEZOLID 600 MG FILM COATED TABLET [Suspect]
     Active Substance: LINEZOLID
     Indication: INFECTION
     Dosage: 600 MILLIGRAM, TWO TIMES A DAY
     Route: 065
     Dates: start: 2020
  2. SUFENTA [Interacting]
     Active Substance: SUFENTANIL CITRATE
     Indication: ANALGESIC THERAPY
     Dosage: 1 DOSAGE FORM (2.5 MCG/UUR)
     Route: 065
     Dates: start: 2020

REACTIONS (3)
  - Serotonin syndrome [Unknown]
  - Haemodynamic instability [Recovered/Resolved]
  - Hyperthermia [Recovered/Resolved]
